FAERS Safety Report 8145183-5 (Version None)
Quarter: 2012Q1

REPORT INFORMATION
  Report Type: 
  Country: None (occurrence: None)
  Receive Date: 20120217
  Receipt Date: 20120210
  Transmission Date: 20120608
  Serious: Yes (Death)
  Sender: FDA-Public Use
  Company Number: US-CELGENEUS-163-21880-11120355

PATIENT
  Sex: Male

DRUGS (13)
  1. DEMEROL [Concomitant]
     Dosage: 50 MILLIGRAM
     Route: 065
  2. REVLIMID [Suspect]
     Dosage: 5 MILLIGRAM
     Route: 048
     Dates: start: 20111001
  3. PERCOCET [Concomitant]
     Dosage: 5/325
     Route: 065
  4. PROCRIT [Concomitant]
     Route: 065
  5. ACETAMINOPHEN [Concomitant]
     Dosage: 650 MILLIGRAM
     Route: 048
  6. ALBUTEROL [Concomitant]
     Dosage: 2 PUFFS
     Route: 045
  7. ACETAMINOPHEN [Concomitant]
     Indication: CHILLS
  8. DEMEROL [Concomitant]
     Indication: CHILLS
  9. SPIRIVA [Concomitant]
     Route: 065
  10. REVLIMID [Suspect]
     Indication: MYELODYSPLASTIC SYNDROME
     Dosage: 10 MILLIGRAM
     Route: 048
     Dates: start: 20110920
  11. ATIVAN [Concomitant]
     Dosage: 1 MILLIGRAM
     Route: 060
  12. OXYGEN [Concomitant]
     Indication: HOSPICE CARE
     Dosage: 2-4 LITERS
     Route: 065
  13. SYMBICORT [Concomitant]
     Dosage: 2 PUFFS
     Route: 065

REACTIONS (3)
  - DISEASE PROGRESSION [None]
  - DISEASE COMPLICATION [None]
  - MYELODYSPLASTIC SYNDROME [None]
